FAERS Safety Report 4357487-2 (Version None)
Quarter: 2004Q2

REPORT INFORMATION
  Report Type: 
  Country: None (occurrence: None)
  Receive Date: 20040512
  Receipt Date: 20040512
  Transmission Date: 20050107
  Serious: Yes (Hospitalization)
  Sender: FDA-Public Use
  Company Number: None

PATIENT
  Age: 53 Year
  Sex: Male
  Weight: 74.2 kg

DRUGS (5)
  1. TAXOTERE [Suspect]
     Indication: LUNG NEOPLASM MALIGNANT
     Dosage: 69.84 MG Q WEEK IV
     Route: 042
     Dates: start: 20040325, end: 20040506
  2. GEMCITABINE [Suspect]
     Indication: LUNG NEOPLASM MALIGNANT
     Dosage: 1164 MG Q WEEK IV
     Route: 042
     Dates: start: 20040301, end: 20040506
  3. MORPHINE SULFATE [Concomitant]
  4. BEXTRA [Concomitant]
  5. PERCOCET [Concomitant]

REACTIONS (2)
  - PERFORMANCE STATUS DECREASED [None]
  - PLEURAL EFFUSION [None]
